FAERS Safety Report 24562892 (Version 3)
Quarter: 2025Q3

REPORT INFORMATION
  Report Type: Report from Study
  Country: JP (occurrence: JP)
  Receive Date: 20241030
  Receipt Date: 20250825
  Transmission Date: 20251020
  Serious: Yes (Hospitalization, Other)
  Sender: UCB
  Company Number: JP-UCBJ-CD202409810UCBPHAPROD

PATIENT
  Age: 14 Year
  Sex: Female

DRUGS (2)
  1. FENFLURAMINE HYDROCHLORIDE [Suspect]
     Active Substance: FENFLURAMINE HYDROCHLORIDE
     Indication: Severe myoclonic epilepsy of infancy
     Route: 048
     Dates: start: 20240404
  2. DIACOMIT [Suspect]
     Active Substance: STIRIPENTOL
     Indication: Product used for unknown indication

REACTIONS (4)
  - Pneumonia [Recovered/Resolved]
  - Decreased appetite [Unknown]
  - Off label use [Unknown]
  - Prescribed overdose [Unknown]

NARRATIVE: CASE EVENT DATE: 20240404
